FAERS Safety Report 4462193-X (Version None)
Quarter: 2004Q3

REPORT INFORMATION
  Report Type: 
  Country: None (occurrence: None)
  Receive Date: 20040928
  Receipt Date: 20040910
  Transmission Date: 20050211
  Serious: Yes (Other)
  Sender: FDA-Public Use
  Company Number: 2004AP000773

PATIENT
  Age: 6 Year
  Sex: Male

DRUGS (2)
  1. PAROXETINE HYDROCHLORIDE [Suspect]
     Indication: MOOD SWINGS
     Dosage: 10 MG; EVERY DAY (DAILY); ORAL
     Route: 048
  2. PAROXETINE HYDROCHLORIDE [Suspect]
     Indication: OBSESSIVE-COMPULSIVE DISORDER
     Dosage: 10 MG; EVERY DAY (DAILY); ORAL
     Route: 048

REACTIONS (4)
  - BRUXISM [None]
  - DYSTONIA [None]
  - EXTRAPYRAMIDAL DISORDER [None]
  - GRAND MAL CONVULSION [None]
